FAERS Safety Report 4786737-3 (Version None)
Quarter: 2005Q3

REPORT INFORMATION
  Report Type: 
  Country: None (occurrence: None)
  Receive Date: 20050930
  Receipt Date: 20050919
  Transmission Date: 20060218
  Serious: Yes (Hospitalization, Other)
  Sender: FDA-Public Use
  Company Number: 2005131314

PATIENT
  Age: 65 Year
  Sex: Female
  Weight: 105.2345 kg

DRUGS (1)
  1. NORVASC [Suspect]
     Indication: HYPERTENSION
     Dosage: 10 MG (10 MG, 1 IN 1 D)

REACTIONS (2)
  - COLORECTAL CANCER [None]
  - SKIN LESION [None]
